FAERS Safety Report 23877883 (Version 2)
Quarter: 2025Q1

REPORT INFORMATION
  Report Type: Report from Study
  Country: CA (occurrence: None)
  Receive Date: 20240521
  Receipt Date: 20250325
  Transmission Date: 20250409
  Serious: Yes (Other)
  Sender: ORION
  Company Number: CA-PFIZER INC-202400108548

PATIENT
  Age: 48 Year
  Sex: Female

DRUGS (4)
  1. METHOTREXATE [Suspect]
     Active Substance: METHOTREXATE
     Indication: Product used for unknown indication
  2. IBUPROFEN [Suspect]
     Active Substance: IBUPROFEN
     Indication: Product used for unknown indication
  3. SIMPONI [Suspect]
     Active Substance: GOLIMUMAB
     Indication: Ankylosing spondylitis
     Dosage: CYCLICAL
  4. ADVIL [Suspect]
     Active Substance: IBUPROFEN
     Indication: Product used for unknown indication

REACTIONS (7)
  - Abdominal pain upper [Unknown]
  - Pneumonia [Unknown]
  - Emotional disorder [Unknown]
  - Hiatus hernia [Unknown]
  - Irritability [Unknown]
  - Sacral pain [Unknown]
  - Metabolic surgery [Unknown]
